FAERS Safety Report 16499770 (Version 6)
Quarter: 2024Q3

REPORT INFORMATION
  Report Type: Spontaneous
  Country: SK (occurrence: SK)
  Receive Date: 20190701
  Receipt Date: 20240904
  Transmission Date: 20241016
  Serious: Yes (Hospitalization, Other)
  Sender: ACCORD
  Company Number: SK-ACCORD-135126

PATIENT
  Age: 53 Year
  Sex: Female

DRUGS (26)
  1. DOCETAXEL [Suspect]
     Active Substance: DOCETAXEL\DOCETAXEL ANHYDROUS
     Indication: Breast cancer
     Dosage: REPEATED CYCLES
  2. LETROZOLE [Suspect]
     Active Substance: LETROZOLE
     Indication: Breast cancer
  3. DOXORUBICIN [Suspect]
     Active Substance: DOXORUBICIN
     Indication: Breast cancer
     Dosage: REPEATED CYCLES?240 MG / M2, WITH DOSES UP TO 300 MG / M2
  4. FUROSEMIDE [Suspect]
     Active Substance: FUROSEMIDE
     Indication: Diuretic therapy
  5. CYCLOPHOSPHAMIDE [Suspect]
     Active Substance: CYCLOPHOSPHAMIDE
     Indication: Breast cancer
     Dosage: REPEATED CYCLES
  6. TRASTUZUMAB [Suspect]
     Active Substance: TRASTUZUMAB
     Indication: Breast cancer
     Dosage: REPEATED CYCLES
  7. CARVEDILOL [Concomitant]
     Active Substance: CARVEDILOL
  8. TRANDOLAPRIL [Concomitant]
     Active Substance: TRANDOLAPRIL
  9. SPIRONOLACTONE [Concomitant]
     Active Substance: SPIRONOLACTONE
  10. RIVAROXABAN [Concomitant]
     Active Substance: RIVAROXABAN
  11. TRIMETAZIDINE [Concomitant]
     Active Substance: TRIMETAZIDINE
  12. METAMIZOLE [Concomitant]
     Active Substance: METAMIZOLE
  13. COENZYME Q10 [Concomitant]
     Active Substance: DIETARY SUPPLEMENT\UBIDECARENONE
  14. LEVOCARNITINE [Concomitant]
     Active Substance: LEVOCARNITINE
  15. CANDESARTAN [Concomitant]
     Active Substance: CANDESARTAN
  16. EPLERENONE [Concomitant]
     Active Substance: EPLERENONE
  17. METOPROLOL TARTRATE [Concomitant]
     Active Substance: METOPROLOL TARTRATE
  18. IVABRADINE [Concomitant]
     Active Substance: IVABRADINE
  19. NALOXONE HYDROCHLORIDE\OXYCODONE HYDROCHLORIDE [Concomitant]
     Active Substance: NALOXONE HYDROCHLORIDE\OXYCODONE HYDROCHLORIDE
  20. ACETAMINOPHEN [Concomitant]
     Active Substance: ACETAMINOPHEN
  21. MAGNESIUM [Concomitant]
     Active Substance: MAGNESIUM
  22. NOREPINEPHRINE [Concomitant]
     Active Substance: NOREPINEPHRINE\NOREPINEPHRINE BITARTRATE
  23. LEVOSIMENDAN [Concomitant]
     Active Substance: LEVOSIMENDAN
  24. NEOTONE [Concomitant]
  25. SACUBITRIL\VALSARTAN [Concomitant]
     Active Substance: SACUBITRIL\VALSARTAN
  26. ALLOPURINOL [Concomitant]
     Active Substance: ALLOPURINOL

REACTIONS (13)
  - Cough [Recovering/Resolving]
  - Fatigue [Recovering/Resolving]
  - Cardiac failure chronic [Recovering/Resolving]
  - Dilated cardiomyopathy [Recovering/Resolving]
  - Oedema peripheral [Recovered/Resolved]
  - Pulmonary congestion [Recovering/Resolving]
  - Obesity [Unknown]
  - Dyspnoea [Recovering/Resolving]
  - Dizziness [Recovered/Resolved]
  - Spinal pain [Unknown]
  - Orthopnoea [Recovering/Resolving]
  - Tachypnoea [Recovering/Resolving]
  - Ventricular hypokinesia [Recovering/Resolving]

NARRATIVE: CASE EVENT DATE: 20160101
